FAERS Safety Report 13856181 (Version 1)
Quarter: 2017Q3

REPORT INFORMATION
  Report Type: Spontaneous
  Country: JP (occurrence: JP)
  Receive Date: 20170810
  Receipt Date: 20170810
  Transmission Date: 20171127
  Serious: Yes (Hospitalization, Other)
  Sender: FDA-Public Use
  Company Number: JP-HQ SPECIALTY-JP-2017INT000285

PATIENT
  Age: 62 Year
  Sex: Female

DRUGS (7)
  1. TEGAFUR [Suspect]
     Active Substance: TEGAFUR
     Indication: METASTASES TO LUNG
     Dosage: UNK
     Route: 065
  2. NIVOLUMAB [Suspect]
     Active Substance: NIVOLUMAB
     Indication: CHEMOTHERAPY
  3. GIMERACIL [Suspect]
     Active Substance: GIMERACIL
     Indication: METASTASES TO LUNG
     Dosage: UNK
     Route: 065
  4. OTERACIL [Suspect]
     Active Substance: OTERACIL
     Indication: METASTASES TO LUNG
     Dosage: UNK
     Route: 065
  5. PACLITAXEL. [Suspect]
     Active Substance: PACLITAXEL
     Indication: METASTASES TO LUNG
     Dosage: UNK
     Route: 065
  6. NIVOLUMAB [Suspect]
     Active Substance: NIVOLUMAB
     Indication: METASTASES TO CENTRAL NERVOUS SYSTEM
     Dosage: UNK (SEVEN CYCLES)
     Route: 065
  7. NIVOLUMAB [Suspect]
     Active Substance: NIVOLUMAB
     Indication: METASTASES TO LUNG

REACTIONS (3)
  - Interstitial lung disease [Recovering/Resolving]
  - Tumour pseudoprogression [Recovering/Resolving]
  - Disease progression [Unknown]
